FAERS Safety Report 7488569-4 (Version None)
Quarter: 2011Q2

REPORT INFORMATION
  Report Type: 
  Country: None (occurrence: None)
  Receive Date: 20110518
  Receipt Date: 20081001
  Transmission Date: 20111010
  Serious: Yes (Hospitalization, Other)
  Sender: FDA-Public Use
  Company Number: US-BAYER-2011-007101

PATIENT
  Age: 39 Year
  Sex: Female
  Weight: 91 kg

DRUGS (10)
  1. ALDACTONE [Concomitant]
     Indication: FLUID RETENTION
     Dosage: UNK
     Dates: start: 20030101, end: 20040101
  2. CAPTOPRIL [Concomitant]
     Indication: HYPERTENSION
     Dosage: UNK
     Dates: start: 20000101, end: 20010101
  3. RED BLOOD CELLS [Concomitant]
     Dosage: 3 UNITS
     Dates: start: 20030805
  4. PLATELETS [Concomitant]
     Dosage: 12 UNITS
     Dates: start: 20030805
  5. TRASYLOL [Suspect]
     Indication: PULMONARY VALVE REPLACEMENT
     Dosage: UNK
     Route: 042
     Dates: start: 20030805, end: 20030805
  6. COUMADIN [Concomitant]
     Dosage: 2 AND 3 MG DOSES
     Dates: start: 20030101
  7. HEPARIN [Concomitant]
     Dosage: 4000 MG
     Route: 042
     Dates: start: 20030805
  8. PROTAMINE SULFATE [Concomitant]
     Dosage: 300 MG
     Route: 042
     Dates: start: 20030805
  9. PLASMA [Concomitant]
     Dosage: 3 UNITS
     Dates: start: 20030805
  10. FUROSEMIDE [Concomitant]
     Indication: FLUID RETENTION
     Dosage: UNK
     Dates: start: 20030101, end: 20040101

REACTIONS (5)
  - INJURY [None]
  - PAIN [None]
  - CEREBROVASCULAR ACCIDENT [None]
  - EMOTIONAL DISTRESS [None]
  - ANXIETY [None]
